FAERS Safety Report 19232170 (Version 1)
Quarter: 2021Q2

REPORT INFORMATION
  Report Type: Spontaneous
  Country: AR (occurrence: AR)
  Receive Date: 20210507
  Receipt Date: 20210507
  Transmission Date: 20210717
  Serious: Yes (Other)
  Sender: FDA-Public Use
  Company Number: AR-009507513-2105ARG000860

PATIENT
  Age: 60 Year

DRUGS (1)
  1. PREVYMIS [Suspect]
     Active Substance: LETERMOVIR
     Dosage: UNK

REACTIONS (2)
  - Cytomegalovirus infection reactivation [Unknown]
  - Transplant [Unknown]
